FAERS Safety Report 23783357 (Version 1)
Quarter: 2024Q2

REPORT INFORMATION
  Report Type: Spontaneous
  Country: AR (occurrence: AR)
  Receive Date: 20240425
  Receipt Date: 20240425
  Transmission Date: 20240715
  Serious: Yes (Hospitalization, Other)
  Sender: FDA-Public Use
  Company Number: AR-GLANDPHARMA-AR-2024GLNLIT00042

PATIENT
  Age: 74 Year
  Sex: Male

DRUGS (1)
  1. ENOXAPARIN SODIUM [Suspect]
     Active Substance: ENOXAPARIN SODIUM
     Indication: Coronary revascularisation
     Route: 065

REACTIONS (2)
  - Bullous haemorrhagic dermatosis [Recovered/Resolved]
  - Product use in unapproved indication [Unknown]
